FAERS Safety Report 8922961 (Version 1)
Quarter: 2012Q4

REPORT INFORMATION
  Report Type: 
  Country: JP (occurrence: JP)
  Receive Date: 20121123
  Receipt Date: 20121123
  Transmission Date: 20130627
  Serious: Yes (Other)
  Sender: FDA-Public Use
  Company Number: JP-PFIZER INC-2012289260

PATIENT
  Sex: Female

DRUGS (2)
  1. HALCION [Suspect]
     Route: 048
  2. EURODIN [Concomitant]
     Indication: INSOMNIA

REACTIONS (1)
  - Cerebral infarction [Unknown]
